FAERS Safety Report 10471892 (Version 1)
Quarter: 2014Q3

REPORT INFORMATION
  Report Type: Spontaneous
  Country: JP (occurrence: JP)
  Receive Date: 20140924
  Receipt Date: 20140924
  Transmission Date: 20150326
  Serious: Yes (Hospitalization)
  Sender: FDA-Public Use
  Company Number: JP-ROCHE-1464147

PATIENT
  Age: 64 Year
  Sex: Female
  Weight: 49 kg

DRUGS (8)
  1. COPEGUS [Suspect]
     Active Substance: RIBAVIRIN
     Route: 048
     Dates: start: 20140422, end: 20140512
  2. COPEGUS [Suspect]
     Active Substance: RIBAVIRIN
     Route: 048
     Dates: start: 20140513, end: 20140519
  3. COPEGUS [Suspect]
     Active Substance: RIBAVIRIN
     Route: 048
     Dates: start: 20140527, end: 20140625
  4. SOVRIAD [Suspect]
     Active Substance: SIMEPREVIR
     Indication: CHRONIC HEPATITIS C
     Route: 048
     Dates: start: 20140311, end: 20140602
  5. PEGASYS [Suspect]
     Active Substance: PEGINTERFERON ALFA-2A
     Indication: CHRONIC HEPATITIS C
     Dosage: A WEEK
     Route: 058
     Dates: start: 20140311, end: 20140624
  6. COPEGUS [Suspect]
     Active Substance: RIBAVIRIN
     Dosage: AFTER SUPPER
     Route: 048
     Dates: start: 20140408, end: 20140421
  7. COPEGUS [Suspect]
     Active Substance: RIBAVIRIN
     Route: 048
     Dates: start: 20140520, end: 20140526
  8. COPEGUS [Suspect]
     Active Substance: RIBAVIRIN
     Indication: CHRONIC HEPATITIS C
     Dosage: AFTER BREAKFAST
     Route: 048
     Dates: start: 20140311, end: 20140407

REACTIONS (12)
  - Decreased appetite [Unknown]
  - Accessory spleen [Unknown]
  - Malaise [Unknown]
  - Rash [Unknown]
  - Cerebellar haemorrhage [Not Recovered/Not Resolved]
  - Pyrexia [Unknown]
  - Aspartate aminotransferase increased [Recovered/Resolved]
  - Headache [Unknown]
  - Alanine aminotransferase increased [Recovered/Resolved]
  - Haemoglobin decreased [Recovering/Resolving]
  - Splenomegaly [Unknown]
  - Pruritus [Unknown]

NARRATIVE: CASE EVENT DATE: 20140625
